FAERS Safety Report 7804513-1 (Version None)
Quarter: 2011Q4

REPORT INFORMATION
  Report Type: 
  Country: None (occurrence: None)
  Receive Date: 20111010
  Receipt Date: 20110927
  Transmission Date: 20120403
  Serious: Yes (Other)
  Sender: FDA-Public Use
  Company Number: PHHY2011BR86473

PATIENT
  Age: 62 Year
  Sex: Male

DRUGS (2)
  1. DIOVAN HCT [Suspect]
     Dosage: 1 DF (160 GM VALS AND 12.5 MG HYDR), UNK
  2. CANDESARTAN CILEXETIL [Concomitant]

REACTIONS (2)
  - VENTRICULAR DYSKINESIA [None]
  - CAROTID INTIMA-MEDIA THICKNESS INCREASED [None]
